FAERS Safety Report 24541363 (Version 1)
Quarter: 2024Q4

REPORT INFORMATION
  Report Type: Spontaneous
  Country: US (occurrence: None)
  Receive Date: 20241023
  Receipt Date: 20241023
  Transmission Date: 20250115
  Serious: Yes (Death)
  Sender: Public
  Company Number: None

PATIENT
  Age: 60 Year
  Sex: Male
  Weight: 82.5 kg

DRUGS (5)
  1. KCENTRA [Suspect]
     Active Substance: COAGULATION FACTOR IX HUMAN\COAGULATION FACTOR VII HUMAN\COAGULATION FACTOR X HUMAN\PROTEIN C\PROTEI
     Indication: Procoagulant therapy
     Dosage: OTHER FREQUENCY : ONE TIME DOSE;?
     Route: 041
     Dates: start: 202408
  2. Iopamidol 76% IV solution [Concomitant]
     Dates: start: 202408, end: 20241014
  3. INSULIN NOS [Concomitant]
     Active Substance: INSULIN NOS
     Dates: start: 202408, end: 20241015
  4. TRANEXAMIC ACID [Concomitant]
     Active Substance: TRANEXAMIC ACID
     Dates: start: 202408, end: 20241014
  5. ELIQUIS [Concomitant]
     Active Substance: APIXABAN
     Dates: start: 202408, end: 20241014

REACTIONS (2)
  - Cardiac arrest [None]
  - Hypoxia [None]

NARRATIVE: CASE EVENT DATE: 20240813
